FAERS Safety Report 4620802-6 (Version None)
Quarter: 2005Q1

REPORT INFORMATION
  Report Type: 
  Country: None (occurrence: None)
  Receive Date: 20050325
  Receipt Date: 20050314
  Transmission Date: 20050727
  Serious: Yes (Hospitalization)
  Sender: FDA-Public Use
  Company Number: 200510498BWH

PATIENT
  Age: 72 Year
  Sex: Male
  Weight: 60.5552 kg

DRUGS (11)
  1. DACARBAZINE [Suspect]
     Indication: METASTASES TO LUNG
     Dosage: 1000 MG/M2, TOTAL DAILY, INTRAVENOUS
     Route: 042
     Dates: start: 20050314
  2. DACARBAZINE [Suspect]
     Indication: METASTATIC MALIGNANT MELANOMA
     Dosage: 1000 MG/M2, TOTAL DAILY, INTRAVENOUS
     Route: 042
     Dates: start: 20050314
  3. INTERLEUKIN [Concomitant]
  4. TELITHROMYCIN [Concomitant]
  5. CLARINEX D [Concomitant]
  6. GLUCOPHAGE [Concomitant]
  7. LOTREL [Concomitant]
  8. HYDROCHLOROTHIAZIDE [Concomitant]
  9. LIPITOR [Concomitant]
  10. CARDURA [Concomitant]
  11. CENTRUM [Concomitant]

REACTIONS (10)
  - ANXIETY [None]
  - APNOEA [None]
  - COUGH [None]
  - DYSPNOEA [None]
  - HEART RATE INCREASED [None]
  - HYPOTENSION [None]
  - PRODUCTIVE COUGH [None]
  - RESPIRATORY RATE INCREASED [None]
  - THROAT TIGHTNESS [None]
  - VOMITING [None]
